FAERS Safety Report 11385597 (Version 1)
Quarter: 2015Q3

REPORT INFORMATION
  Report Type: Spontaneous
  Country: US (occurrence: US)
  Receive Date: 20150817
  Receipt Date: 20150817
  Transmission Date: 20151125
  Serious: Yes (Other)
  Sender: FDA-Public Use
  Company Number: US-HOSPIRA-2969064

PATIENT

DRUGS (1)
  1. SODIUM NITROPRUSSIDE [Suspect]
     Active Substance: SODIUM NITROPRUSSIDE
     Indication: BLOOD PRESSURE MANAGEMENT
     Route: 041

REACTIONS (2)
  - Respiratory depression [Unknown]
  - Blood cyanide increased [Unknown]
